FAERS Safety Report 19153124 (Version 1)
Quarter: 2021Q2

REPORT INFORMATION
  Report Type: Spontaneous
  Country: US (occurrence: US)
  Receive Date: 20210419
  Receipt Date: 20210419
  Transmission Date: 20210717
  Serious: No
  Sender: FDA-Public Use
  Company Number: US-JNJFOC-20210431604

PATIENT
  Age: 48 Year
  Sex: Female

DRUGS (10)
  1. COVID?19 VACCINE NOS. [Concomitant]
     Active Substance: COVID-19 VACCINE NOS
     Indication: PRODUCT USED FOR UNKNOWN INDICATION
     Dosage: LEFT ARM /TIME: 11:25 AM
     Route: 065
     Dates: start: 20210218
  2. OMEPRAZOLE. [Concomitant]
     Active Substance: OMEPRAZOLE
     Indication: PRODUCT USED FOR UNKNOWN INDICATION
     Route: 065
     Dates: start: 202102
  3. CLARITIN [Concomitant]
     Active Substance: LORATADINE
     Indication: PRODUCT USED FOR UNKNOWN INDICATION
     Route: 065
     Dates: start: 20210218
  4. XANAX [Concomitant]
     Active Substance: ALPRAZOLAM
     Indication: PRODUCT USED FOR UNKNOWN INDICATION
     Dosage: QUARTER OF A PILL
     Route: 065
  5. PEPCID [Suspect]
     Active Substance: FAMOTIDINE
     Indication: HOT FLUSH
  6. PEPCID [Suspect]
     Active Substance: FAMOTIDINE
     Indication: ERYTHEMA
  7. PEPCID [Suspect]
     Active Substance: FAMOTIDINE
     Indication: SWELLING FACE
  8. PEPCID [Suspect]
     Active Substance: FAMOTIDINE
     Indication: ERUCTATION
  9. COVID?19 VACCINE NOS. [Concomitant]
     Active Substance: COVID-19 VACCINE NOS
     Dosage: LEFT ARM / 11:48 AM
     Route: 065
     Dates: start: 20210311
  10. PEPCID [Suspect]
     Active Substance: FAMOTIDINE
     Indication: HYPERSENSITIVITY
     Route: 065
     Dates: start: 20210218

REACTIONS (2)
  - Product use in unapproved indication [Unknown]
  - Off label use [Unknown]

NARRATIVE: CASE EVENT DATE: 20210218
